FAERS Safety Report 7281757-1 (Version None)
Quarter: 2011Q1

REPORT INFORMATION
  Report Type: 
  Country: None (occurrence: None)
  Receive Date: 20110208
  Receipt Date: 20100513
  Transmission Date: 20110831
  Serious: Yes (Other)
  Sender: FDA-Public Use
  Company Number: US-PFIZER INC-2010060928

PATIENT
  Sex: Female
  Weight: 62.6 kg

DRUGS (7)
  1. ATIVAN [Concomitant]
     Dosage: UNK, AS NEEDED
  2. PROTONIX [Concomitant]
     Dosage: 40 MG, DAILY
  3. SUTENT [Suspect]
     Indication: RENAL CELL CARCINOMA
     Dosage: 50 MG, 1X/DAY, 4 WKS ON, 2 WKS OFF
     Dates: start: 20090420, end: 20090724
  4. ADVIL [Concomitant]
     Dosage: 400 MG, AS NEEDED
  5. LIPITOR [Concomitant]
     Dosage: 40 MG, DAILY
  6. LEVOTHYROXINE [Concomitant]
     Dosage: 50 UG, DAILY
  7. NORCO [Concomitant]
     Indication: PAIN
     Dosage: UNK, AS NEEDED

REACTIONS (3)
  - DISEASE PROGRESSION [None]
  - NEUTROPENIA [None]
  - METASTATIC RENAL CELL CARCINOMA [None]
